FAERS Safety Report 11278315 (Version 1)
Quarter: 2015Q3

REPORT INFORMATION
  Report Type: Report from Study
  Country: US (occurrence: US)
  Receive Date: 20150717
  Receipt Date: 20150717
  Transmission Date: 20151125
  Serious: No
  Sender: FDA-Public Use
  Company Number: US-LEO PHARMA-235567

PATIENT
  Age: 62 Year
  Sex: Male

DRUGS (1)
  1. DAIVOBET [Suspect]
     Active Substance: BETAMETHASONE DIPROPIONATE\CALCIPOTRIENE
     Indication: PSORIASIS
     Route: 061
     Dates: start: 20150701

REACTIONS (3)
  - Pruritus [Recovered/Resolved]
  - Peripheral swelling [Not Recovered/Not Resolved]
  - Inappropriate schedule of drug administration [Unknown]

NARRATIVE: CASE EVENT DATE: 20150713
